FAERS Safety Report 6556816-9 (Version None)
Quarter: 2010Q1

REPORT INFORMATION
  Report Type: 
  Country: None (occurrence: None)
  Receive Date: 20100128
  Receipt Date: 20100115
  Transmission Date: 20100710
  Serious: Yes (Other)
  Sender: FDA-Public Use
  Company Number: PHHY2010GB04005

PATIENT

DRUGS (1)
  1. DIOVAN [Suspect]

REACTIONS (2)
  - OBESITY [None]
  - OBESITY SURGERY [None]
